FAERS Safety Report 19205167 (Version 3)
Quarter: 2021Q4

REPORT INFORMATION
  Report Type: Report from Study
  Country: CN (occurrence: CN)
  Receive Date: 20210503
  Receipt Date: 20211022
  Transmission Date: 20220303
  Serious: Yes (Other)
  Sender: FDA-Public Use
  Company Number: CN-ASTELLAS-2021US015993

PATIENT
  Age: 32 Year
  Sex: Male

DRUGS (19)
  1. TACROLIMUS [Suspect]
     Active Substance: TACROLIMUS
     Indication: Prophylaxis against transplant rejection
     Route: 048
     Dates: start: 20210112, end: 20210121
  2. TACROLIMUS [Suspect]
     Active Substance: TACROLIMUS
     Route: 048
     Dates: start: 20210112, end: 20210117
  3. TACROLIMUS [Suspect]
     Active Substance: TACROLIMUS
     Route: 048
     Dates: start: 20210118, end: 20210125
  4. TACROLIMUS [Suspect]
     Active Substance: TACROLIMUS
     Route: 048
     Dates: start: 20210122, end: 20210127
  5. TACROLIMUS [Suspect]
     Active Substance: TACROLIMUS
     Route: 048
     Dates: start: 20210126, end: 20210126
  6. TACROLIMUS [Suspect]
     Active Substance: TACROLIMUS
     Route: 048
     Dates: start: 20210127, end: 20210127
  7. TACROLIMUS [Suspect]
     Active Substance: TACROLIMUS
     Route: 048
     Dates: start: 20210128, end: 20210204
  8. TACROLIMUS [Suspect]
     Active Substance: TACROLIMUS
     Route: 048
     Dates: start: 20210205, end: 20210205
  9. TACROLIMUS [Suspect]
     Active Substance: TACROLIMUS
     Route: 048
     Dates: start: 20210205, end: 20210205
  10. TACROLIMUS [Suspect]
     Active Substance: TACROLIMUS
     Route: 048
     Dates: start: 20210206, end: 20210209
  11. TACROLIMUS [Suspect]
     Active Substance: TACROLIMUS
     Route: 048
     Dates: start: 20210206, end: 20210209
  12. TACROLIMUS [Suspect]
     Active Substance: TACROLIMUS
     Indication: Renal transplant
     Route: 048
     Dates: start: 20210210, end: 20210219
  13. TACROLIMUS [Suspect]
     Active Substance: TACROLIMUS
     Route: 048
     Dates: start: 20210220, end: 20210326
  14. TACROLIMUS [Suspect]
     Active Substance: TACROLIMUS
     Route: 048
     Dates: start: 20210327, end: 20210402
  15. TACROLIMUS [Suspect]
     Active Substance: TACROLIMUS
     Route: 048
     Dates: start: 20210403, end: 20210405
  16. TACROLIMUS [Suspect]
     Active Substance: TACROLIMUS
     Route: 048
     Dates: start: 20210406, end: 20210409
  17. TACROLIMUS [Suspect]
     Active Substance: TACROLIMUS
     Route: 048
     Dates: start: 20210410, end: 20210526
  18. TACROLIMUS [Suspect]
     Active Substance: TACROLIMUS
     Route: 048
     Dates: start: 20210527, end: 20210622
  19. TACROLIMUS [Suspect]
     Active Substance: TACROLIMUS
     Route: 048
     Dates: start: 20210523, end: 20210713

REACTIONS (4)
  - Drug-induced liver injury [Not Recovered/Not Resolved]
  - Hypoproteinaemia [Recovered/Resolved]
  - Condition aggravated [Recovered/Resolved]
  - Urinary tract infection [Recovered/Resolved]

NARRATIVE: CASE EVENT DATE: 20210112
